FAERS Safety Report 9891426 (Version 2)
Quarter: 2014Q2

REPORT INFORMATION
  Report Type: Spontaneous
  Country: US (occurrence: US)
  Receive Date: 20140212
  Receipt Date: 20140418
  Transmission Date: 20141212
  Serious: No
  Sender: FDA-Public Use
  Company Number: US-PFIZER INC-2014038251

PATIENT
  Age: 75 Year
  Sex: Female

DRUGS (14)
  1. PRISTIQ [Suspect]
     Dosage: UNK
  2. NEURONTIN [Suspect]
     Dosage: UNK
  3. ARTHROTEC [Suspect]
     Dosage: UNK
  4. LYRICA [Suspect]
     Dosage: UNK
  5. ISOSORBIDE DINITRATE [Suspect]
     Dosage: UNK
  6. OMEPRAZOLE [Suspect]
     Dosage: UNK
  7. TRAMADOL HYDROCHLORIDE [Suspect]
     Dosage: UNK
  8. DARVOCET [Suspect]
     Dosage: UNK
  9. VOLTAREN [Suspect]
     Dosage: UNK
  10. CYMBALTA [Suspect]
     Dosage: UNK
  11. LOVAZA [Suspect]
     Dosage: UNK
  12. PERCOCET [Suspect]
     Dosage: UNK
  13. PAXIL [Suspect]
     Dosage: UNK
  14. TANNIC ACID [Suspect]
     Dosage: UNK

REACTIONS (1)
  - Drug hypersensitivity [Unknown]
